FAERS Safety Report 5925757-X (Version None)
Quarter: 2008Q4

REPORT INFORMATION
  Report Type: 
  Country: None (occurrence: None)
  Receive Date: 20081021
  Receipt Date: 20081010
  Transmission Date: 20090506
  Serious: Yes (Hospitalization)
  Sender: FDA-Public Use
  Company Number: PHHO2008AU08625

PATIENT
  Sex: Male
  Weight: 86.2 kg

DRUGS (15)
  1. STARLIX DJN+TAB [Suspect]
     Indication: GLUCOSE TOLERANCE IMPAIRED
     Dosage: LEVEL 1
     Route: 048
     Dates: start: 20020924
  2. STARLIX DJN+TAB [Suspect]
     Dosage: 60 MG, LEVEL 2
     Route: 048
     Dates: end: 20080601
  3. STARLIX DJN+TAB [Suspect]
     Dosage: 60 MG, LEVEL 2
     Route: 048
     Dates: start: 20080706, end: 20080905
  4. PLACEBO OR VALSARTAN [Suspect]
     Indication: CARDIOVASCULAR DISORDER
     Dosage: 80 MG, LEVEL 1
     Route: 048
     Dates: start: 20020924, end: 20080601
  5. PLACEBO OR VALSARTAN [Suspect]
     Dosage: 80 MG, LEVEL 1
     Route: 048
     Dates: start: 20080706, end: 20080905
  6. OGEN [Suspect]
     Indication: HOT FLUSH
     Dosage: UNK
  7. CATAPRES [Concomitant]
     Indication: HOT FLUSH
  8. ASPIRIN [Concomitant]
     Indication: PROPHYLAXIS
  9. EVENING PRIMROSE OIL [Concomitant]
  10. MAGNESIUM SULFATE [Concomitant]
     Indication: BLOOD MAGNESIUM DECREASED
  11. PREDNISOLONE [Concomitant]
     Indication: RASH
  12. DIPROSONE [Concomitant]
     Indication: RASH
  13. CRAMPEX [Concomitant]
     Indication: MUSCLE SPASMS
  14. CLINDAMYCIN HCL [Concomitant]
     Indication: RASH
  15. BIAXSIG [Concomitant]
     Indication: LOWER RESPIRATORY TRACT INFECTION

REACTIONS (1)
  - PSORIASIS [None]
